FAERS Safety Report 25656907 (Version 2)
Quarter: 2025Q4

REPORT INFORMATION
  Report Type: Spontaneous
  Country: JP (occurrence: JP)
  Receive Date: 20250807
  Receipt Date: 20251118
  Transmission Date: 20260118
  Serious: Yes (Hospitalization, Other)
  Sender: SANOFI AVENTIS
  Company Number: JP-SA-2025SA229269

PATIENT
  Age: 62 Year
  Sex: Female

DRUGS (13)
  1. DUPIXENT [Suspect]
     Active Substance: DUPILUMAB
     Indication: Chronic eosinophilic rhinosinusitis
     Dosage: 300 MG, QOW
     Route: 058
     Dates: start: 20250521, end: 20250723
  2. RUPAFIN [Concomitant]
     Active Substance: RUPATADINE FUMARATE
     Indication: Rhinitis allergic
     Dosage: 10 MG, QD
     Route: 048
  3. MONTELUKAST OD [Concomitant]
     Indication: Rhinitis allergic
     Dosage: 10 MG, QD
     Route: 048
  4. NASONEX [Concomitant]
     Active Substance: MOMETASONE FUROATE
     Indication: Rhinitis allergic
     Dosage: NASAL SPRAYS
     Route: 045
  5. SYMBICORT [Concomitant]
     Active Substance: BUDESONIDE\FORMOTEROL FUMARATE DIHYDRATE
     Indication: Asthma
     Dosage: INHALATION, BID
     Route: 055
  6. LINAGLIPTIN [Concomitant]
     Active Substance: LINAGLIPTIN
     Indication: Product used for unknown indication
     Dosage: 1 DF, QD AFTER BREAKFAST
     Route: 048
  7. METGLUCO [Concomitant]
     Active Substance: METFORMIN HYDROCHLORIDE
     Indication: Product used for unknown indication
     Dosage: 2 DF, BID AFTER BREAKFAST AND DINNER
     Route: 048
  8. SODIUM FERROUS CITRATE [Concomitant]
     Active Substance: SODIUM FERROUS CITRATE
     Indication: Product used for unknown indication
     Dosage: 2 DF, BID AFTER BREAKFAST AND DINNER
     Route: 048
  9. VONOPRAZAN FUMARATE [Concomitant]
     Active Substance: VONOPRAZAN FUMARATE
     Indication: Product used for unknown indication
     Dosage: 1 DF, QD AFTER BREAKFAST
     Route: 048
  10. ZOLPIDEM TARTRATE [Concomitant]
     Active Substance: ZOLPIDEM TARTRATE
     Indication: Product used for unknown indication
     Dosage: 2 DF, QD, HS
     Route: 048
  11. CLARITHROMYCIN [Concomitant]
     Active Substance: CLARITHROMYCIN
     Indication: Product used for unknown indication
     Dosage: 1 DF, QD AFTER BREAKFAST
     Route: 048
  12. CILNIDIPINE [Concomitant]
     Active Substance: CILNIDIPINE
     Indication: Product used for unknown indication
     Dosage: 2 DF, BID AFTER BREAKFAST AND DINNER
     Route: 048
  13. AZILSARTAN KAMEDOXOMIL [Concomitant]
     Active Substance: AZILSARTAN KAMEDOXOMIL
     Indication: Product used for unknown indication
     Dosage: 2 DF, BID AFTER BREAKFAST AND DINNER
     Route: 048

REACTIONS (5)
  - Fall [Unknown]
  - Patella fracture [Unknown]
  - Eosinophilic granulomatosis with polyangiitis [Unknown]
  - Gait inability [Unknown]
  - Eosinophil count increased [Recovering/Resolving]

NARRATIVE: CASE EVENT DATE: 20250721
